FAERS Safety Report 6028350-6 (Version None)
Quarter: 2009Q1

REPORT INFORMATION
  Report Type: 
  Country: None (occurrence: None)
  Receive Date: 20090106
  Receipt Date: 20081230
  Transmission Date: 20090719
  Serious: Yes (Death, Life-Threatening, Hospitalization, Other)
  Sender: FDA-Public Use
  Company Number: US-BAYER-200821220NA

PATIENT
  Age: 65 Year
  Sex: Female
  Weight: 126 kg

DRUGS (15)
  1. RIVAROXABAN 20MG OR WARFARIN (1, 2.5 OR 5MG ADJUSTED DOSE) [Suspect]
     Indication: CEREBROVASCULAR ACCIDENT PROPHYLAXIS
     Route: 048
     Dates: start: 20071029, end: 20071126
  2. RIVAROXABAN 20MG OR WARFARIN (1, 2.5 OR 5MG ADJUSTED DOSE) [Suspect]
     Route: 048
     Dates: start: 20080611, end: 20081217
  3. RIVAROXABAN 20MG OR WARFARIN (1, 2.5 OR 5MG ADJUSTED DOSE) [Suspect]
     Route: 048
     Dates: start: 20071127, end: 20080421
  4. AVELOX [Suspect]
     Indication: PNEUMONIA
     Route: 048
     Dates: start: 20080418
  5. GLUCOPHAGE [Concomitant]
     Indication: DIABETES MELLITUS
     Route: 048
  6. MONOPRIL [Concomitant]
     Indication: HYPERTENSION
     Route: 048
  7. TIAZAC [Concomitant]
     Indication: HYPERTENSION
     Route: 048
  8. THEOCHRON [Concomitant]
     Indication: ASTHMA
     Route: 048
  9. LOPID [Concomitant]
     Indication: HYPERLIPIDAEMIA
     Route: 048
  10. LASIX [Concomitant]
     Indication: FLUID RETENTION
     Route: 048
  11. ALLOPURINOL [Concomitant]
     Indication: GOUT
     Route: 048
  12. GLYBURIDE [Concomitant]
     Indication: DIABETES MELLITUS
     Route: 048
  13. DIGOXIN [Concomitant]
     Indication: ATRIAL FIBRILLATION
     Route: 048
  14. MAXAIR [Concomitant]
     Indication: ASTHMA
     Route: 055
  15. ACTOS [Concomitant]
     Indication: DIABETES MELLITUS
     Route: 048

REACTIONS (7)
  - EPISTAXIS [None]
  - HAEMOPTYSIS [None]
  - INTERNATIONAL NORMALISED RATIO INCREASED [None]
  - MYOCARDIAL INFARCTION [None]
  - PLEURAL EFFUSION [None]
  - PNEUMONIA [None]
  - PROTHROMBIN LEVEL INCREASED [None]
